FAERS Safety Report 8277835-0 (Version None)
Quarter: 2012Q2

REPORT INFORMATION
  Report Type: 
  Country: None (occurrence: None)
  Receive Date: 20120412
  Receipt Date: 20120403
  Transmission Date: 20120825
  Serious: Yes (Other)
  Sender: FDA-Public Use
  Company Number: US-MYLANLABS-2012S1007116

PATIENT
  Sex: Female

DRUGS (2)
  1. AIRBORNE [Suspect]
     Route: 048
  2. AMITRIPTYLINE HCL [Suspect]
     Route: 048

REACTIONS (7)
  - VISION BLURRED [None]
  - DYSARTHRIA [None]
  - HYPOAESTHESIA [None]
  - ACTIVITIES OF DAILY LIVING IMPAIRED [None]
  - DYSGRAPHIA [None]
  - COORDINATION ABNORMAL [None]
  - CEREBROVASCULAR ACCIDENT [None]
